FAERS Safety Report 9087791 (Version 1)
Quarter: 2013Q1

REPORT INFORMATION
  Report Type: Report from Study
  Country: US (occurrence: US)
  Receive Date: 20130130
  Receipt Date: 20130130
  Transmission Date: 20140127
  Serious: No
  Sender: FDA-Public Use
  Company Number: US-ABBOTT-12P-163-0980727-00

PATIENT
  Age: 19 Year
  Sex: Female

DRUGS (4)
  1. HUMIRA [Suspect]
     Indication: CROHN^S DISEASE
     Dates: start: 20120604
  2. LEXAPRO [Concomitant]
     Indication: ANXIETY
     Dosage: DAILY
  3. LOESTRIN [Concomitant]
     Indication: CONTRACEPTION
  4. MELATONIN [Concomitant]
     Indication: SLEEP DISORDER THERAPY

REACTIONS (1)
  - Contusion [Not Recovered/Not Resolved]
